FAERS Safety Report 6538885-5 (Version None)
Quarter: 2010Q1

REPORT INFORMATION
  Report Type: 
  Country: None (occurrence: None)
  Receive Date: 20100115
  Receipt Date: 20100107
  Transmission Date: 20100710
  Serious: Yes (Death)
  Sender: FDA-Public Use
  Company Number: CN-NOVOPROD-302499

PATIENT
  Age: 75 Year
  Sex: Male

DRUGS (1)
  1. NOVORAPID PENFILL [Suspect]
     Indication: TYPE 2 DIABETES MELLITUS
     Dosage: UNK
     Route: 058
     Dates: start: 20091223, end: 20091223

REACTIONS (1)
  - MYOCARDIAL INFARCTION [None]
